FAERS Safety Report 4405382-2 (Version None)
Quarter: 2004Q3

REPORT INFORMATION
  Report Type: 
  Country: None (occurrence: None)
  Receive Date: 20040716
  Receipt Date: 20040705
  Transmission Date: 20050211
  Serious: Yes (Hospitalization)
  Sender: FDA-Public Use
  Company Number: 2004036819

PATIENT
  Age: 82 Year
  Sex: Female

DRUGS (4)
  1. ZOLOFT [Suspect]
     Indication: DEPRESSION
     Dosage: 50 MG (50 MG, 1 IN 1 D), ORAL
     Route: 048
     Dates: start: 20020101
  2. SIMVASTATIN [Concomitant]
  3. OS-CAL                    (CALCIUM, ERGOCALCIFEROL) [Concomitant]
  4. IPRIFLAVONE (IPRIFLAVONE) [Concomitant]

REACTIONS (5)
  - ARTERITIS [None]
  - DEPRESSION [None]
  - DISEASE RECURRENCE [None]
  - HEADACHE [None]
  - WEIGHT DECREASED [None]
